FAERS Safety Report 5781225-X (Version None)
Quarter: 2008Q2

REPORT INFORMATION
  Report Type: 
  Country: None (occurrence: None)
  Receive Date: 20080618
  Receipt Date: 20080603
  Transmission Date: 20081010
  Serious: Yes (Death, Life-Threatening)
  Sender: FDA-Public Use
  Company Number: E7273-00002-SPO-US

PATIENT
  Age: 78 Year
  Sex: Male

DRUGS (7)
  1. TARGRETIN [Suspect]
     Indication: T-CELL LYMPHOMA
     Dosage: 375 MG, 5 IN 1 D, ORAL, 675 MG, 9 IN 1 D, ORAL, 450 MG, 6 IN 1 D, ORAL
     Route: 048
     Dates: start: 20080221, end: 20080301
  2. TARGRETIN [Suspect]
     Indication: T-CELL LYMPHOMA
     Dosage: 375 MG, 5 IN 1 D, ORAL, 675 MG, 9 IN 1 D, ORAL, 450 MG, 6 IN 1 D, ORAL
     Route: 048
     Dates: start: 20080311, end: 20080325
  3. TARGRETIN [Suspect]
     Indication: T-CELL LYMPHOMA
     Dosage: 375 MG, 5 IN 1 D, ORAL, 675 MG, 9 IN 1 D, ORAL, 450 MG, 6 IN 1 D, ORAL
     Route: 048
     Dates: start: 20080326, end: 20080401
  4. TARGRETIN [Suspect]
     Indication: T-CELL LYMPHOMA
     Dosage: 375 MG, 5 IN 1 D, ORAL, 675 MG, 9 IN 1 D, ORAL, 450 MG, 6 IN 1 D, ORAL
     Route: 048
     Dates: start: 20080409
  5. HYDROCHLOROTHIAZIDE [Concomitant]
  6. ZOCOR [Concomitant]
  7. TRICOR [Concomitant]

REACTIONS (2)
  - BLOOD TRIGLYCERIDES INCREASED [None]
  - CEREBROVASCULAR ACCIDENT [None]
